FAERS Safety Report 25902454 (Version 2)
Quarter: 2025Q4

REPORT INFORMATION
  Report Type: Spontaneous
  Country: US (occurrence: US)
  Receive Date: 20251009
  Receipt Date: 20251104
  Transmission Date: 20260117
  Serious: No
  Sender: DR REDDYS
  Company Number: US-DRL-USA-USA/2025/09/013965

PATIENT
  Age: 69 Year
  Sex: Female

DRUGS (1)
  1. CLONIDINE TRANSDERMAL SYSTEM [Suspect]
     Active Substance: CLONIDINE
     Indication: Blood pressure abnormal
     Dosage: SHE^S BEEN USING IT ONCE A WEEK.

REACTIONS (7)
  - Product dose omission issue [Not Recovered/Not Resolved]
  - Product adhesion issue [Unknown]
  - Product quality issue [Unknown]
  - Therapy interrupted [Unknown]
  - Incorrect product administration duration [Unknown]
  - Product distribution issue [Unknown]
  - Circumstance or information capable of leading to medication error [Unknown]
